FAERS Safety Report 7881125-5 (Version None)
Quarter: 2011Q4

REPORT INFORMATION
  Report Type: 
  Country: None (occurrence: None)
  Receive Date: 20111101
  Receipt Date: 20110606
  Transmission Date: 20120403
  Serious: No
  Sender: FDA-Public Use
  Company Number: US-AMGEN-USASP2011029119

PATIENT
  Age: 49 Year
  Sex: Female

DRUGS (6)
  1. ENBREL [Suspect]
     Indication: RHEUMATOID ARTHRITIS
     Dosage: 50 MG, QWK
     Dates: start: 20110417
  2. CITALOPRAM HYDROBROMIDE [Concomitant]
  3. METHOTREXATE [Concomitant]
  4. LORAZEPAM [Concomitant]
  5. LEUKOVORIN [Concomitant]
  6. LEVOTHYROXINE SODIUM [Concomitant]

REACTIONS (2)
  - VAGINAL INFECTION [None]
  - FUNGAL INFECTION [None]
